FAERS Safety Report 10245022 (Version 2)
Quarter: 2014Q4

REPORT INFORMATION
  Report Type: Spontaneous
  Country: US (occurrence: US)
  Receive Date: 20140618
  Receipt Date: 20141218
  Transmission Date: 20150528
  Serious: No
  Sender: FDA-Public Use
  Company Number: US-GALDERMA-US14001593

PATIENT
  Age: 46 Year
  Sex: Female

DRUGS (6)
  1. FINACEA [Concomitant]
     Active Substance: AZELAIC ACID
     Dosage: 15%
     Route: 061
     Dates: start: 2014
  2. MIRVASO [Suspect]
     Active Substance: BRIMONIDINE TARTRATE
  3. MIRVASO [Suspect]
     Active Substance: BRIMONIDINE TARTRATE
     Indication: ROSACEA
     Dosage: 0.33%
     Route: 061
     Dates: start: 201402, end: 201402
  4. VANICREAM [Concomitant]
     Active Substance: TITANIUM DIOXIDE\ZINC OXIDE
     Indication: DRY SKIN
  5. METROCREAM [Concomitant]
     Active Substance: METRONIDAZOLE
     Indication: ROSACEA
     Dosage: 0.75
     Route: 061
  6. VANICREAM [Concomitant]
     Active Substance: TITANIUM DIOXIDE\ZINC OXIDE
     Indication: ROSACEA
     Route: 061

REACTIONS (6)
  - Hyperaemia [Recovered/Resolved]
  - Swelling [Recovered/Resolved]
  - Rebound effect [Recovered/Resolved]
  - Condition aggravated [Recovered/Resolved]
  - Erythema [Recovered/Resolved]
  - Skin burning sensation [Recovered/Resolved]

NARRATIVE: CASE EVENT DATE: 201402
